FAERS Safety Report 10665403 (Version 1)
Quarter: 2014Q4

REPORT INFORMATION
  Report Type: Spontaneous
  Country: US (occurrence: None)
  Receive Date: 20141208
  Receipt Date: 20141208
  Transmission Date: 20150529
  Serious: No
  Sender: FDA-Public Use
  Company Number: 2014TUS006257

PATIENT
  Age: 74 Year
  Sex: Female

DRUGS (2)
  1. WELLBUTRIN(BUPROPION HYDROCHLORIDE) [Concomitant]
  2. BRINTELLIX [Suspect]
     Active Substance: VORTIOXETINE HYDROBROMIDE
     Indication: ANXIETY
     Dosage: 5 MG 1/2 TABLET QD, ORAL
     Route: 048
     Dates: start: 201406, end: 201406

REACTIONS (2)
  - Dizziness [None]
  - Urinary tract infection [None]

NARRATIVE: CASE EVENT DATE: 20140627
